FAERS Safety Report 11769092 (Version 3)
Quarter: 2022Q1

REPORT INFORMATION
  Report Type: Spontaneous
  Country: JP (occurrence: None)
  Receive Date: 20151123
  Receipt Date: 20220124
  Transmission Date: 20220423
  Serious: Yes (Death, Hospitalization, Other)
  Sender: FDA-Public Use
  Company Number: 2015SF18102

PATIENT
  Age: 24 Year
  Sex: Female

DRUGS (1)
  1. QUETIAPINE [Suspect]
     Active Substance: QUETIAPINE
     Indication: Product used for unknown indication
     Dosage: 68 DF ONCE
     Route: 048

REACTIONS (5)
  - Intentional overdose [Fatal]
  - Crush syndrome [Fatal]
  - Compartment syndrome [Fatal]
  - Shock [Unknown]
  - Acute kidney injury [Unknown]
